FAERS Safety Report 23665272 (Version 1)
Quarter: 2024Q1

REPORT INFORMATION
  Report Type: Report from Study
  Country: JP (occurrence: None)
  Receive Date: 20240322
  Receipt Date: 20240322
  Transmission Date: 20240410
  Serious: Yes (Death, Life-Threatening)
  Sender: FDA-Public Use
  Company Number: 2023A139706

PATIENT
  Age: 82 Year
  Sex: Male
  Weight: 50 kg

DRUGS (5)
  1. IMJUDO [Suspect]
     Active Substance: TREMELIMUMAB\TREMELIMUMAB-ACTL
     Indication: Hepatocellular carcinoma
     Dosage: 300 MG
     Route: 041
     Dates: start: 20230526, end: 20230526
  2. IMFINZI [Suspect]
     Active Substance: DURVALUMAB
     Indication: Hepatocellular carcinoma
     Dosage: 1500 MG
     Route: 041
     Dates: start: 20230526, end: 20230526
  3. FLUCONAZOLE [Suspect]
     Active Substance: FLUCONAZOLE
     Indication: Prophylaxis
     Dates: start: 20230606, end: 20230727
  4. TOLVAPTAN [Suspect]
     Active Substance: TOLVAPTAN
     Indication: Ascites
     Dates: start: 20230714, end: 20230718
  5. TOLVAPTAN [Suspect]
     Active Substance: TOLVAPTAN
     Indication: Ascites
     Dates: start: 20230719, end: 20230727

REACTIONS (3)
  - Immune thrombocytopenia [Recovered/Resolved]
  - Drug-induced liver injury [Fatal]
  - Skin disorder [Unknown]

NARRATIVE: CASE EVENT DATE: 20230606
